FAERS Safety Report 7149095-5 (Version None)
Quarter: 2010Q4

REPORT INFORMATION
  Report Type: 
  Country: None (occurrence: None)
  Receive Date: 20101124
  Receipt Date: 20101111
  Transmission Date: 20110411
  Serious: Yes (Hospitalization, Other)
  Sender: FDA-Public Use
  Company Number: 2010P1002570

PATIENT
  Age: 61 Year
  Sex: Female
  Weight: 65.7716 kg

DRUGS (3)
  1. FENTANYL-25 [Suspect]
     Indication: BACK PAIN
     Dosage: 25 - 50 MCG/HR;Q72H; TDER
     Route: 062
     Dates: start: 20100101, end: 20101001
  2. UNSPECIFIED MEDICATIONS  FOR DEPRESSION [Concomitant]
  3. UNSPECIFIED PAIN MEDICATTONS [Concomitant]

REACTIONS (8)
  - APPLICATION SITE PRURITUS [None]
  - BLOOD CREATININE INCREASED [None]
  - MYOCARDIAL INFARCTION [None]
  - NEPHROLITHIASIS [None]
  - PALPITATIONS [None]
  - PARAESTHESIA [None]
  - RASH PRURITIC [None]
  - RENAL IMPAIRMENT [None]
